FAERS Safety Report 8085898 (Version 6)
Quarter: 2013Q1

REPORT INFORMATION
  Report Type: Report from Study
  Country: US (occurrence: US)
  Receive Date: 20110811
  Receipt Date: 20130129
  Transmission Date: 20140127
  Serious: Yes (Hospitalization)
  Sender: FDA-Public Use
  Company Number: PHHO2010US07680

PATIENT
  Age: 56 Year
  Sex: Male
  Weight: 83.6 kg

DRUGS (6)
  1. ZORTRESS [Suspect]
     Indication: LIVER TRANSPLANT
     Dosage: 1.5 MG, Q12H
     Route: 048
     Dates: start: 20090723, end: 20110525
  2. TACROLIMUS [Suspect]
     Indication: LIVER TRANSPLANT
     Dosage: 1 G, UNK
     Dates: start: 20090622, end: 20110626
  3. AUGMENTIN [Suspect]
     Indication: SINUSITIS
     Dosage: 500 MG, QD
     Route: 048
     Dates: start: 20100929, end: 20101006
  4. HYDROCHLOROTHIAZIDE [Concomitant]
  5. LISINOPRIL [Concomitant]
  6. PROGRAF [Concomitant]
     Indication: LIVER TRANSPLANT
     Dosage: 1 MG, Q12H
     Dates: start: 20100622

REACTIONS (9)
  - Renal failure acute [Recovering/Resolving]
  - Pancytopenia [Recovered/Resolved]
  - Hepatic steatosis [Recovered/Resolved]
  - Hepatic enzyme increased [Recovered/Resolved]
  - Transaminases increased [Not Recovered/Not Resolved]
  - Pyrexia [Not Recovered/Not Resolved]
  - Concomitant disease progression [Not Recovered/Not Resolved]
  - Alcohol abuse [Not Recovered/Not Resolved]
  - Fall [Not Recovered/Not Resolved]
